FAERS Safety Report 13071728 (Version 1)
Quarter: 2016Q4

REPORT INFORMATION
  Report Type: Spontaneous
  Country: US (occurrence: US)
  Receive Date: 20161228
  Receipt Date: 20161228
  Transmission Date: 20170207
  Serious: Yes (Life-Threatening)
  Sender: FDA-Public Use
  Company Number: None

PATIENT
  Age: 53 Year
  Sex: Female

DRUGS (1)
  1. TETRABENAZINE 25MG SUN PHARMACEUTICALS [Suspect]
     Active Substance: TETRABENAZINE
     Indication: DYSTONIA
     Dosage: 25MG 25MG AM AND AFTERNOON; PO
     Route: 048
     Dates: start: 20160803

REACTIONS (3)
  - Palpitations [None]
  - Nervousness [None]
  - Feeling abnormal [None]

NARRATIVE: CASE EVENT DATE: 20161213
